FAERS Safety Report 11012077 (Version 2)
Quarter: 2015Q2

REPORT INFORMATION
  Report Type: Spontaneous
  Country: US (occurrence: US)
  Receive Date: 20150410
  Receipt Date: 20150525
  Transmission Date: 20150821
  Serious: No
  Sender: FDA-Public Use
  Company Number: US-JNJFOC-20120807387

PATIENT
  Sex: Female
  Weight: 95.26 kg

DRUGS (3)
  1. HUMIRA [Suspect]
     Active Substance: ADALIMUMAB
     Indication: CROHN^S DISEASE
     Dosage: 40 MG/0.8 ML PEN
     Route: 058
     Dates: start: 20110927, end: 201203
  2. ESOMEPRAZOLE [Suspect]
     Active Substance: ESOMEPRAZOLE
     Indication: CROHN^S DISEASE
  3. REMICADE [Suspect]
     Active Substance: INFLIXIMAB
     Indication: CROHN^S DISEASE
     Route: 042

REACTIONS (13)
  - Pain in extremity [Unknown]
  - Immune system disorder [Recovered/Resolved]
  - Infection susceptibility increased [Unknown]
  - Skin papilloma [Unknown]
  - Dyspnoea [Recovered/Resolved]
  - Pruritus [Unknown]
  - Abdominal pain [Unknown]
  - Rash pruritic [Recovered/Resolved]
  - Rash papular [Unknown]
  - Ear infection [Recovered/Resolved]
  - Gastrooesophageal reflux disease [Unknown]
  - Back pain [Unknown]
  - Bronchitis [Recovered/Resolved]
